FAERS Safety Report 5409250-9 (Version None)
Quarter: 2007Q3

REPORT INFORMATION
  Report Type: 
  Country: None (occurrence: None)
  Receive Date: 20070809
  Receipt Date: 20070801
  Transmission Date: 20080115
  Serious: Yes (Death, Other)
  Sender: FDA-Public Use
  Company Number: PHBS2007JP11734

PATIENT
  Age: 63 Year
  Sex: Female
  Weight: 44 kg

DRUGS (6)
  1. DUROTEP JANSSEN [Suspect]
     Indication: CANCER PAIN
     Dosage: 7.6 MG/DAY
     Route: 062
     Dates: start: 20070409, end: 20070721
  2. RITALIN [Suspect]
     Indication: GENERAL PHYSICAL HEALTH DETERIORATION
     Dosage: 20 MG/DAY
     Route: 048
     Dates: start: 20070703, end: 20070710
  3. ROPION [Concomitant]
     Indication: PYREXIA
     Dosage: 200 MG/DAY
     Route: 042
     Dates: start: 20070528, end: 20070710
  4. MINOCYCLINE HCL [Concomitant]
     Indication: INFECTION
     Dosage: 200 MG/DAY
     Route: 042
     Dates: start: 20070621, end: 20070710
  5. PRIMPERAN INJ [Concomitant]
     Indication: NAUSEA
     Dosage: 20 MG/DAY
     Route: 042
     Dates: start: 20070402, end: 20070711
  6. NAPROXEN [Concomitant]
     Indication: PYREXIA
     Dosage: 300 MG/DAY
     Route: 048
     Dates: start: 20070607, end: 20070703

REACTIONS (14)
  - ANAEMIA [None]
  - DELIRIUM [None]
  - DEPRESSED LEVEL OF CONSCIOUSNESS [None]
  - DYSCHEZIA [None]
  - GENERAL PHYSICAL HEALTH DETERIORATION [None]
  - HEPATIC ENCEPHALOPATHY [None]
  - HEPATIC FUNCTION ABNORMAL [None]
  - INTESTINAL STENOSIS [None]
  - JAUNDICE [None]
  - MELAENA [None]
  - METASTASES TO GASTROINTESTINAL TRACT [None]
  - OEDEMA [None]
  - OVARIAN CANCER [None]
  - URINE OUTPUT DECREASED [None]
